FAERS Safety Report 8942517 (Version 1)
Quarter: 2012Q4

REPORT INFORMATION
  Report Type: 
  Country: SE (occurrence: SE)
  Receive Date: 20121204
  Receipt Date: 20121204
  Transmission Date: 20130627
  Serious: Yes (Hospitalization)
  Sender: FDA-Public Use
  Company Number: SE-MYLANLABS-2012S1024791

PATIENT
  Age: 42 Year
  Sex: Male

DRUGS (3)
  1. NAPROXEN [Suspect]
     Indication: PRODUCT USED FOR UNKNOWN INDICATION
     Dates: start: 20120713, end: 20120714
  2. NAPROXEN [Suspect]
     Indication: PRODUCT USED FOR UNKNOWN INDICATION
     Dates: start: 20120712, end: 20120713
  3. CORTISON [Concomitant]
     Indication: PRODUCT USED FOR UNKNOWN INDICATION

REACTIONS (5)
  - C-reactive protein increased [Recovered/Resolved]
  - Blister [Recovered/Resolved]
  - Decreased immune responsiveness [Recovered/Resolved]
  - Depressed mood [Recovered/Resolved]
  - White blood cell count decreased [Recovered/Resolved]
